FAERS Safety Report 8617516-4 (Version None)
Quarter: 2012Q3

REPORT INFORMATION
  Report Type: 
  Country: None (occurrence: None)
  Receive Date: 20120824
  Receipt Date: 20111107
  Transmission Date: 20120928
  Serious: No
  Sender: FDA-Public Use
  Company Number: US-ASTRAZENECA-2011SE67143

PATIENT
  Age: 35 Year
  Sex: Male

DRUGS (2)
  1. SYMBICORT [Suspect]
     Indication: ASTHMA
     Dosage: TWO INHALATIONS, DAILY
     Route: 055
     Dates: start: 20111001
  2. VIAGRA [Concomitant]

REACTIONS (2)
  - HEART RATE INCREASED [None]
  - INCORRECT DOSE ADMINISTERED [None]
